FAERS Safety Report 5931236-6 (Version None)
Quarter: 2008Q4

REPORT INFORMATION
  Report Type: 
  Country: None (occurrence: None)
  Receive Date: 20081023
  Receipt Date: 20060822
  Transmission Date: 20090506
  Serious: Yes (Life-Threatening, Other)
  Sender: FDA-Public Use
  Company Number: 2006AL002580

PATIENT
  Age: 68 Year
  Sex: Male

DRUGS (2)
  1. METFORMIN HYDROCHLORIDE [Suspect]
     Indication: TYPE 1 DIABETES MELLITUS
     Dosage: TID; PO
     Route: 048
     Dates: start: 20060731, end: 20060803
  2. GLIPIZIDE [Concomitant]

REACTIONS (1)
  - HYPERGLYCAEMIA [None]
